FAERS Safety Report 7935423-7 (Version None)
Quarter: 2011Q4

REPORT INFORMATION
  Report Type: 
  Country: None (occurrence: None)
  Receive Date: 20111122
  Receipt Date: 20111115
  Transmission Date: 20120403
  Serious: Yes (Hospitalization, Other)
  Sender: FDA-Public Use
  Company Number: US-ROXANE LABORATORIES, INC.-2011-RO-01650RO

PATIENT
  Age: 71 Year
  Sex: Female

DRUGS (4)
  1. BENZODIAZEPINE [Suspect]
  2. AMLODIPINE [Suspect]
     Dosage: 5 MG
  3. PREDNISONE TAB [Suspect]
  4. MORPHINE [Suspect]

REACTIONS (4)
  - TOXIC EPIDERMAL NECROLYSIS [None]
  - HEART RATE INCREASED [None]
  - HYPOTENSION [None]
  - HYPERTENSION [None]
